FAERS Safety Report 15832399 (Version 1)
Quarter: 2019Q1

REPORT INFORMATION
  Report Type: Report from Study
  Country: PA (occurrence: PA)
  Receive Date: 20190116
  Receipt Date: 20190116
  Transmission Date: 20190417
  Serious: Yes (Other)
  Sender: FDA-Public Use
  Company Number: PA-SA-2019SA001470

PATIENT
  Age: 82 Year
  Sex: Female

DRUGS (1)
  1. INSULIN GLARGINE [Suspect]
     Active Substance: INSULIN GLARGINE
     Indication: DIABETES MELLITUS
     Dosage: 30 IU, QD
     Route: 058
     Dates: start: 2013

REACTIONS (1)
  - Dementia Alzheimer^s type [Recovered/Resolved with Sequelae]

NARRATIVE: CASE EVENT DATE: 2015
